FAERS Safety Report 7610317-5 (Version None)
Quarter: 2011Q3

REPORT INFORMATION
  Report Type: 
  Country: None (occurrence: None)
  Receive Date: 20110706
  Receipt Date: 20110622
  Transmission Date: 20111222
  Serious: Yes (Hospitalization)
  Sender: FDA-Public Use
  Company Number: US-2011-10427

PATIENT
  Age: 49 Year
  Sex: Male

DRUGS (3)
  1. OPC-41061 (TOLVAPTAN) TABLET, 15MG MILLIGRAM(S) [Suspect]
     Indication: CONGENITAL CYSTIC KIDNEY DISEASE
     Dosage: 45/15MG SPLIT DOSE, ORAL
     Route: 048
     Dates: start: 20110301
  2. ALLOPURINOL [Concomitant]
  3. FOLIC ACID [Concomitant]

REACTIONS (1)
  - POLYNEUROPATHY [None]
